FAERS Safety Report 17339779 (Version 2)
Quarter: 2020Q1

REPORT INFORMATION
  Report Type: Spontaneous
  Country: GB (occurrence: GB)
  Receive Date: 20200129
  Receipt Date: 20200213
  Transmission Date: 20200409
  Serious: Yes (Other)
  Sender: FDA-Public Use
  Company Number: GB-PFIZER INC-2020036611

PATIENT
  Sex: Female

DRUGS (3)
  1. SERTRALINE HCL [Suspect]
     Active Substance: SERTRALINE HYDROCHLORIDE
     Indication: DEPRESSION
     Dosage: 50 MG, 1X/DAY
     Dates: start: 20191223, end: 20191224
  2. KALMS [FERULA ASSA-FOETIDA;GENTIANA LUTEA ROOT;HUMULUS LUPULUS;VALERIA [Interacting]
     Active Substance: HERBALS
     Dosage: UNK
  3. SERTRALINE HCL [Interacting]
     Active Substance: SERTRALINE HYDROCHLORIDE
     Indication: ANXIETY

REACTIONS (5)
  - Vomiting [Recovered/Resolved]
  - Loss of consciousness [Recovered/Resolved]
  - Drug interaction [Unknown]
  - Circulatory collapse [Recovered/Resolved]
  - Nausea [Unknown]

NARRATIVE: CASE EVENT DATE: 20191223
